FAERS Safety Report 4381220-1 (Version None)
Quarter: 2004Q2

REPORT INFORMATION
  Report Type: 
  Country: None (occurrence: None)
  Receive Date: 20040616
  Receipt Date: 20040603
  Transmission Date: 20050107
  Serious: Yes (Other)
  Sender: FDA-Public Use
  Company Number: 2004029807

PATIENT
  Age: 66 Year
  Sex: Male

DRUGS (3)
  1. PROCARDIA [Suspect]
     Indication: ILL-DEFINED DISORDER
  2. SIMVASTATIN [Suspect]
     Indication: ILL-DEFINED DISORDER
  3. TRIAMTERNE (TRIAMTERENE) [Suspect]
     Indication: ILL-DEFINED DISORDER

REACTIONS (1)
  - BLADDER CANCER [None]
